FAERS Safety Report 8615971-7 (Version None)
Quarter: 2012Q3

REPORT INFORMATION
  Report Type: 
  Country: None (occurrence: None)
  Receive Date: 20120823
  Receipt Date: 20120821
  Transmission Date: 20120928
  Serious: No
  Sender: FDA-Public Use
  Company Number: US-PFIZER INC-2012205532

PATIENT
  Age: 56 Year
  Sex: Male
  Weight: 106.58 kg

DRUGS (8)
  1. CHANTIX [Suspect]
     Dosage: 0.5 MG, 2X/DAY
     Route: 048
     Dates: end: 20120818
  2. ACTOS [Concomitant]
     Dosage: 45 MG, UNK
  3. QUINAPRIL [Concomitant]
     Indication: HYPERTENSION
     Dosage: 20 MG, 2X/DAY
  4. VYTORIN [Concomitant]
     Indication: BLOOD CHOLESTEROL INCREASED
     Dosage: 10/80 MG, UNK
  5. JANUVIA [Concomitant]
     Dosage: 100 MG, UNK
  6. CHANTIX [Suspect]
     Indication: SMOKING CESSATION THERAPY
     Dosage: 0.5 MG, 1X/DAY
     Route: 048
     Dates: start: 20120814
  7. QUINAPRIL [Concomitant]
     Indication: CORONARY ARTERY OCCLUSION
  8. METFORMIN [Concomitant]
     Dosage: 500 MG, 2X/DAY

REACTIONS (1)
  - RASH GENERALISED [None]
